FAERS Safety Report 25360116 (Version 3)
Quarter: 2025Q3

REPORT INFORMATION
  Report Type: Report from Study
  Country: US (occurrence: US)
  Receive Date: 20250527
  Receipt Date: 20250810
  Transmission Date: 20251021
  Serious: Yes (Other)
  Sender: ALEXION PHARMACEUTICALS
  Company Number: US-AstraZeneca-CH-00877182A

PATIENT
  Sex: Female

DRUGS (2)
  1. DAPAGLIFLOZIN [Suspect]
     Active Substance: DAPAGLIFLOZIN
     Route: 065
  2. CRESTOR [Suspect]
     Active Substance: ROSUVASTATIN CALCIUM
     Route: 065

REACTIONS (14)
  - Glaucoma [Unknown]
  - Hypertensive nephropathy [Unknown]
  - Hypertension [Unknown]
  - Rhinitis allergic [Unknown]
  - Coronary artery disease [Unknown]
  - COVID-19 [Unknown]
  - Hypertonic bladder [Unknown]
  - Vitamin D decreased [Unknown]
  - Impaired fasting glucose [Unknown]
  - Thyroid mass [Unknown]
  - Hypernatraemia [Unknown]
  - Renal disorder [Unknown]
  - Anxiety [Unknown]
  - Intertrigo [Unknown]
